FAERS Safety Report 5469405-4 (Version None)
Quarter: 2007Q3

REPORT INFORMATION
  Report Type: 
  Country: None (occurrence: None)
  Receive Date: 20070925
  Receipt Date: 20070925
  Transmission Date: 20080115
  Serious: Yes (Other)
  Sender: FDA-Public Use
  Company Number: None

PATIENT
  Sex: Female
  Weight: 54.4316 kg

DRUGS (2)
  1. LEVAQUIN [Suspect]
     Indication: BRONCHITIS
     Dosage: 1  PER DAY  PO
     Route: 048
     Dates: start: 20070920, end: 20070923
  2. LEVAQUIN [Suspect]
     Indication: SINUSITIS
     Dosage: 1  PER DAY  PO
     Route: 048
     Dates: start: 20070920, end: 20070923

REACTIONS (4)
  - DYSPNOEA [None]
  - MUSCLE SPASMS [None]
  - RASH ERYTHEMATOUS [None]
  - RASH PRURITIC [None]
